FAERS Safety Report 10417346 (Version 1)
Quarter: 2014Q3

REPORT INFORMATION
  Report Type: Spontaneous
  Country: US (occurrence: US)
  Receive Date: 20140828
  Receipt Date: 20140828
  Transmission Date: 20150326
  Serious: No
  Sender: FDA-Public Use
  Company Number: US-ASTRAZENECA-2014SE62143

PATIENT
  Age: 66 Year
  Sex: Male
  Weight: 73.5 kg

DRUGS (8)
  1. PREVACID [Concomitant]
     Active Substance: LANSOPRAZOLE
  2. MAALOX ANTACID [Concomitant]
     Active Substance: ALUMINUM HYDROXIDE\DIMETHICONE\MAGNESIUM HYDROXIDE
  3. PREVACID RX [Concomitant]
  4. NEXIUM [Suspect]
     Active Substance: ESOMEPRAZOLE MAGNESIUM
     Indication: GASTROOESOPHAGEAL REFLUX DISEASE
     Route: 048
     Dates: start: 20140716
  5. TUMS [Concomitant]
     Active Substance: CALCIUM CARBONATE
  6. PRILOSEC [Suspect]
     Active Substance: OMEPRAZOLE MAGNESIUM
     Indication: GASTROOESOPHAGEAL REFLUX DISEASE
     Dosage: DAILY UNK
     Route: 048
  7. ACIPHEX [Concomitant]
     Active Substance: RABEPRAZOLE SODIUM
  8. PRILOSEC [Suspect]
     Active Substance: OMEPRAZOLE MAGNESIUM
     Indication: GASTROOESOPHAGEAL REFLUX DISEASE
     Dosage: DAILY UNK
     Route: 048

REACTIONS (7)
  - Dyspepsia [Unknown]
  - Condition aggravated [Not Recovered/Not Resolved]
  - Chest discomfort [Unknown]
  - Sleep disorder due to a general medical condition [Not Recovered/Not Resolved]
  - Memory impairment [Unknown]
  - Intentional product misuse [Unknown]
  - Drug ineffective [Unknown]

NARRATIVE: CASE EVENT DATE: 2012
